FAERS Safety Report 12916632 (Version 1)
Quarter: 2016Q4

REPORT INFORMATION
  Report Type: Spontaneous
  Country: US (occurrence: US)
  Receive Date: 20161107
  Receipt Date: 20161107
  Transmission Date: 20170207
  Serious: No
  Sender: FDA-Public Use
  Company Number: US-JAZZ-2016-US-017258

PATIENT
  Age: 28 Year
  Sex: Female

DRUGS (11)
  1. LYZA [Concomitant]
     Active Substance: NORETHINDRONE
  2. MULTIVITAMINS [Concomitant]
     Active Substance: VITAMINS
  3. PROVIGIL [Concomitant]
     Active Substance: MODAFINIL
  4. XYREM [Suspect]
     Active Substance: SODIUM OXYBATE
     Indication: NARCOLEPSY
     Dosage: 2.25 G, BID
     Route: 048
     Dates: start: 2015, end: 201508
  5. XYREM [Suspect]
     Active Substance: SODIUM OXYBATE
     Dosage: DOSE ADJUSTMENTS
     Route: 048
     Dates: start: 201508, end: 201605
  6. LAMICTAL [Concomitant]
     Active Substance: LAMOTRIGINE
  7. MELATONIN [Concomitant]
     Active Substance: MELATONIN
  8. NORETHINDRONE. [Concomitant]
     Active Substance: NORETHINDRONE
  9. ADVIL [Concomitant]
     Active Substance: IBUPROFEN
  10. XYREM [Suspect]
     Active Substance: SODIUM OXYBATE
     Dosage: 4 G, BID
     Route: 048
     Dates: start: 201605
  11. METRONIDAZOLE. [Concomitant]
     Active Substance: METRONIDAZOLE

REACTIONS (2)
  - Road traffic accident [Recovered/Resolved]
  - Concussion [Unknown]

NARRATIVE: CASE EVENT DATE: 201609
